FAERS Safety Report 9060921 (Version 5)
Quarter: 2014Q3

REPORT INFORMATION
  Report Type: Report from Study
  Country: CA (occurrence: CA)
  Receive Date: 20130212
  Receipt Date: 20140909
  Transmission Date: 20150326
  Serious: Yes (Other)
  Sender: FDA-Public Use
  Company Number: PHHY2004CA005727

PATIENT
  Age: 54 Year
  Sex: Male

DRUGS (7)
  1. OLANZAPINE. [Concomitant]
     Active Substance: OLANZAPINE
  2. FOLIC [Concomitant]
  3. ATIVAN [Concomitant]
     Active Substance: LORAZEPAM
  4. CLONAZEPAM. [Concomitant]
     Active Substance: CLONAZEPAM
  5. BENZTROPINE [Concomitant]
     Active Substance: BENZTROPINE
  6. DOCUSATE [Concomitant]
     Active Substance: DOCUSATE
  7. CLOZARIL [Suspect]
     Active Substance: CLOZAPINE
     Indication: SCHIZOPHRENIA
     Dosage: 200 MG
     Route: 048
     Dates: start: 19980503

REACTIONS (9)
  - Lymphoma [Not Recovered/Not Resolved]
  - Flank pain [Unknown]
  - Thrombocytopenia [Unknown]
  - Back pain [Unknown]
  - Psychosomatic disease [Recovered/Resolved]
  - White blood cell count decreased [Not Recovered/Not Resolved]
  - Agranulocytosis [Not Recovered/Not Resolved]
  - Hepatitis C virus test positive [Unknown]
  - Neutropenia [Not Recovered/Not Resolved]

NARRATIVE: CASE EVENT DATE: 20140805
